FAERS Safety Report 16373851 (Version 1)
Quarter: 2019Q2

REPORT INFORMATION
  Report Type: Spontaneous
  Country: GB (occurrence: GB)
  Receive Date: 20190530
  Receipt Date: 20190530
  Transmission Date: 20190711
  Serious: Yes (Other)
  Sender: FDA-Public Use
  Company Number: GB-SA-2019SA146758

PATIENT
  Age: 33 Year
  Sex: Female

DRUGS (1)
  1. RIFINAH [Suspect]
     Active Substance: ISONIAZID\RIFAMPIN
     Indication: LATENT TUBERCULOSIS
     Dosage: 300/150 STRENGTH
     Route: 048
     Dates: start: 201805, end: 201806

REACTIONS (2)
  - Pallor [Recovered/Resolved]
  - Rash maculo-papular [Recovered/Resolved]

NARRATIVE: CASE EVENT DATE: 201806
